APPROVED DRUG PRODUCT: OVIDE
Active Ingredient: MALATHION
Strength: 0.5% **Federal Register determination that product was not discontinued or withdrawn for safety or effectiveness reasons**
Dosage Form/Route: LOTION;TOPICAL
Application: N018613 | Product #001
Applicant: TARO PHARMACEUTICAL INDUSTRIES LTD
Approved: Aug 2, 1982 | RLD: Yes | RS: No | Type: DISCN

PATENTS:
Patent 7977324 | Expires: Aug 14, 2026
Patent 7560445 | Expires: Feb 1, 2027